FAERS Safety Report 14009847 (Version 1)
Quarter: 2017Q3

REPORT INFORMATION
  Report Type: Report from Study
  Country: BE (occurrence: BE)
  Receive Date: 20170925
  Receipt Date: 20170925
  Transmission Date: 20171128
  Serious: Yes (Other)
  Sender: FDA-Public Use
  Company Number: PHHY2013BE079797

PATIENT
  Age: 50 Year
  Sex: Female

DRUGS (3)
  1. GILENYA [Suspect]
     Active Substance: FINGOLIMOD HYDROCHLORIDE
     Indication: MULTIPLE SCLEROSIS
     Dosage: QD
     Route: 048
     Dates: start: 20130128, end: 20131111
  2. GILENYA [Suspect]
     Active Substance: FINGOLIMOD HYDROCHLORIDE
     Dosage: QD
     Route: 048
     Dates: start: 20131112, end: 20140123
  3. PANTOMED (PANTOPRAZOLE SODIUM) [Concomitant]
     Active Substance: PANTOPRAZOLE SODIUM
     Indication: PROPHYLAXIS
     Route: 065
     Dates: start: 20130330, end: 20130403

REACTIONS (9)
  - Cystitis [Recovered/Resolved]
  - Hepatic function abnormal [Recovered/Resolved]
  - Gamma-glutamyltransferase increased [Unknown]
  - Genital infection fungal [Recovered/Resolved]
  - Tension headache [Recovered/Resolved]
  - Anxiety [Unknown]
  - Headache [Recovered/Resolved]
  - Gastrointestinal infection [Recovered/Resolved]
  - Optic neuritis [Unknown]

NARRATIVE: CASE EVENT DATE: 20130202
